FAERS Safety Report 10239356 (Version 2)
Quarter: 2021Q1

REPORT INFORMATION
  Report Type: Spontaneous
  Country: FR (occurrence: FR)
  Receive Date: 20140616
  Receipt Date: 20210220
  Transmission Date: 20210419
  Serious: Yes (Life-Threatening, Hospitalization)
  Sender: FDA-Public Use
  Company Number: FR-JNJFOC-20140604078

PATIENT
  Age: 25 Year
  Sex: Male

DRUGS (13)
  1. THERALENE [Suspect]
     Active Substance: TRIMEPRAZINE
     Indication: INSOMNIA
     Dosage: PATIENT WAS TREATED WITH 4%ALIMEMAZINE TARTRATE 30 DROPS A DAY FROM 28?FEB TO 10?MAR
     Route: 048
     Dates: start: 20140228, end: 20140310
  2. LOXAPINE. [Suspect]
     Active Substance: LOXAPINE
     Indication: AGITATION
     Dosage: REPORTED BRAND NAME WAS LOXAPAX 25MG/ML
     Route: 065
     Dates: start: 20140312
  3. LEPTICUR [Suspect]
     Active Substance: TROPATEPINE HYDROCHLORIDE
     Indication: PRODUCT USED FOR UNKNOWN INDICATION
     Route: 048
     Dates: start: 20140303
  4. XEPLION [Suspect]
     Active Substance: PALIPERIDONE PALMITATE
     Indication: PRODUCT USED FOR UNKNOWN INDICATION
     Route: 030
     Dates: start: 20140310, end: 20140310
  5. NOZINAN [Suspect]
     Active Substance: LEVOMEPROMAZINE
     Indication: PRODUCT USED FOR UNKNOWN INDICATION
     Route: 048
     Dates: start: 20140306, end: 20140321
  6. THERALENE [Suspect]
     Active Substance: TRIMEPRAZINE
     Dosage: THE PATIENT WAS TREATED WITH 4%ALIMEMAZINE TARTRATE 50 DROPS FROM 11?MAR
     Route: 048
     Dates: start: 20140311
  7. DEPAKOTE [Suspect]
     Active Substance: DIVALPROEX SODIUM
     Indication: PRODUCT USED FOR UNKNOWN INDICATION
     Route: 048
     Dates: start: 20140301, end: 20140310
  8. VALIUM [Suspect]
     Active Substance: DIAZEPAM
     Indication: PRODUCT USED FOR UNKNOWN INDICATION
     Dosage: THE PATIENT WAS TREATED WITH DIAZEPAM1% 30 DROPS A DAY.
     Route: 065
     Dates: start: 20140228
  9. XEPLION [Suspect]
     Active Substance: PALIPERIDONE PALMITATE
  10. LOXAPAC [Suspect]
     Active Substance: LOXAPINE
     Indication: AGITATION
     Dosage: THE PATIENT WAS TREATED WITH 50 MG/2ML INJECTIONS 2 AMPOULES MORNING, AFTERNOON AND ON NIGHT.
     Route: 030
     Dates: start: 20140304, end: 20140321
  11. HALDOL [Suspect]
     Active Substance: HALOPERIDOL
     Indication: PRODUCT USED FOR UNKNOWN INDICATION
     Route: 048
     Dates: start: 20140311, end: 20140321
  12. XEPLION [Suspect]
     Active Substance: PALIPERIDONE PALMITATE
  13. DEPAKOTE [Suspect]
     Active Substance: DIVALPROEX SODIUM
     Route: 048
     Dates: start: 20140311

REACTIONS (2)
  - Necrotising colitis [Recovered/Resolved]
  - Shock [Recovered/Resolved]

NARRATIVE: CASE EVENT DATE: 20140321
